FAERS Safety Report 4704277-4 (Version None)
Quarter: 2005Q2

REPORT INFORMATION
  Report Type: 
  Country: None (occurrence: None)
  Receive Date: 20050630
  Receipt Date: 20050601
  Transmission Date: 20051028
  Serious: Yes (Other)
  Sender: FDA-Public Use
  Company Number: 2005AP03205

PATIENT
  Age: 36 Year
  Sex: Female
  Weight: 76 kg

DRUGS (8)
  1. CARBOCAIN AMPOULE [Suspect]
     Indication: INFILTRATION ANAESTHESIA
     Route: 008
     Dates: start: 20020101
  2. CARBOCAIN AMPOULE [Suspect]
     Route: 008
     Dates: start: 20020601
  3. CARBOCAIN AMPOULE [Suspect]
     Route: 008
     Dates: start: 20030924, end: 20030924
  4. DEXART [Concomitant]
     Indication: EPIDURAL ANAESTHESIA
     Dates: start: 20020101
  5. RINDERON [Concomitant]
     Indication: LOCAL ANAESTHESIA
  6. RINDERON [Concomitant]
     Dosage: 2 AMPOULES GIVEN
     Dates: start: 20030924, end: 20030924
  7. NEUROTROPIN [Concomitant]
     Route: 048
     Dates: start: 20030702, end: 20040526
  8. ROPIVACAINE [Concomitant]
     Indication: EPIDURAL ANAESTHESIA
     Route: 008

REACTIONS (3)
  - ASTHMA [None]
  - OEDEMA PERIPHERAL [None]
  - SWELLING FACE [None]
